FAERS Safety Report 8000763-2 (Version None)
Quarter: 2011Q4

REPORT INFORMATION
  Report Type: 
  Country: None (occurrence: None)
  Receive Date: 20111222
  Receipt Date: 20111212
  Transmission Date: 20120403
  Serious: Yes (Hospitalization)
  Sender: FDA-Public Use
  Company Number: FR-BRISTOL-MYERS SQUIBB COMPANY-16284184

PATIENT
  Age: 52 Year
  Sex: Male

DRUGS (4)
  1. CISPLATIN [Suspect]
     Indication: TESTIS CANCER
     Dosage: 1DF:8,12,16,20 MG/M SUP(2)
     Route: 042
  2. MESNA [Suspect]
     Indication: TESTIS CANCER
  3. IFOSFAMIDE [Suspect]
     Indication: TESTIS CANCER
  4. ETOPOSIDE [Suspect]
     Indication: TESTIS CANCER
     Dosage: 1DF:75 MG/M SUP(2).100MG/M SUP(2) 5 DAYS

REACTIONS (2)
  - ACUTE RESPIRATORY DISTRESS SYNDROME [None]
  - RENAL FAILURE [None]
